FAERS Safety Report 21480100 (Version 12)
Quarter: 2025Q2

REPORT INFORMATION
  Report Type: Report from Study
  Country: CA (occurrence: CA)
  Receive Date: 20221019
  Receipt Date: 20250415
  Transmission Date: 20250717
  Serious: Yes (Hospitalization, Other)
  Sender: TAKEDA
  Company Number: CA-TAKEDA-2021TUS078644

PATIENT
  Age: 65 Year
  Sex: Male

DRUGS (16)
  1. VEDOLIZUMAB [Suspect]
     Active Substance: VEDOLIZUMAB
     Indication: Crohn^s disease
  2. VEDOLIZUMAB [Suspect]
     Active Substance: VEDOLIZUMAB
  3. VEDOLIZUMAB [Suspect]
     Active Substance: VEDOLIZUMAB
  4. VEDOLIZUMAB [Suspect]
     Active Substance: VEDOLIZUMAB
  5. VEDOLIZUMAB [Suspect]
     Active Substance: VEDOLIZUMAB
  6. VEDOLIZUMAB [Suspect]
     Active Substance: VEDOLIZUMAB
  7. VEDOLIZUMAB [Suspect]
     Active Substance: VEDOLIZUMAB
  8. VEDOLIZUMAB [Suspect]
     Active Substance: VEDOLIZUMAB
  9. VEDOLIZUMAB [Suspect]
     Active Substance: VEDOLIZUMAB
  10. VEDOLIZUMAB [Suspect]
     Active Substance: VEDOLIZUMAB
  11. VEDOLIZUMAB [Suspect]
     Active Substance: VEDOLIZUMAB
  12. VEDOLIZUMAB [Suspect]
     Active Substance: VEDOLIZUMAB
  13. VEDOLIZUMAB [Suspect]
     Active Substance: VEDOLIZUMAB
  14. METHOTREXATE [Concomitant]
     Active Substance: METHOTREXATE
  15. PREDNISONE [Concomitant]
     Active Substance: PREDNISONE
  16. PREDNISONE [Concomitant]
     Active Substance: PREDNISONE

REACTIONS (10)
  - Intestinal obstruction [Recovered/Resolved]
  - Crohn^s disease [Recovering/Resolving]
  - Abdominal pain [Recovered/Resolved]
  - Constipation [Recovered/Resolved]
  - Vertigo [Not Recovered/Not Resolved]
  - Malaise [Unknown]
  - Blood pressure increased [Unknown]
  - Influenza [Unknown]
  - Fall [Unknown]
  - Joint injury [Unknown]

NARRATIVE: CASE EVENT DATE: 20220117
